FAERS Safety Report 21581899 (Version 1)
Quarter: 2022Q4

REPORT INFORMATION
  Report Type: Spontaneous
  Country: FR (occurrence: FR)
  Receive Date: 20221111
  Receipt Date: 20221111
  Transmission Date: 20230112
  Serious: Yes (Life-Threatening, Hospitalization, Other)
  Sender: FDA-Public Use
  Company Number: FR-AFSSAPS-CN20221982

PATIENT
  Age: 64 Year
  Sex: Male
  Weight: 91 kg

DRUGS (14)
  1. EVEROLIMUS [Suspect]
     Active Substance: EVEROLIMUS
     Indication: Renal transplant
     Dosage: 1.5 MILLIGRAM, TWO TIMES A DAY
     Route: 048
     Dates: start: 20220627
  2. PREDNISONE [Suspect]
     Active Substance: PREDNISONE
     Indication: Renal transplant
     Dosage: 20 MILLIGRAM, ONCE A DAY
     Route: 048
     Dates: start: 20211120, end: 20211206
  3. PREDNISONE [Suspect]
     Active Substance: PREDNISONE
     Dosage: 15 MILLIGRAM, ONCE A DAY
     Route: 048
     Dates: start: 20211207, end: 20211217
  4. PREDNISONE [Suspect]
     Active Substance: PREDNISONE
     Dosage: 10 MILLIGRAM, ONCE A DAY
     Route: 048
     Dates: start: 20211218, end: 20220311
  5. PREDNISONE [Suspect]
     Active Substance: PREDNISONE
     Dosage: 5 MILLIGRAM, ONCE A DAY
     Route: 048
     Dates: start: 20220312
  6. PROGRAF [Suspect]
     Active Substance: TACROLIMUS
     Indication: Renal transplant
     Dosage: 7.5 MILLIGRAM, TWO TIMES A DAY
     Route: 048
     Dates: start: 20211120, end: 20211207
  7. PROGRAF [Suspect]
     Active Substance: TACROLIMUS
     Dosage: 6.5 MILLIGRAM, TWO TIMES A DAY
     Route: 048
     Dates: start: 20211208, end: 20211218
  8. PROGRAF [Suspect]
     Active Substance: TACROLIMUS
     Dosage: 7 MILLIGRAM, TWO TIMES A DAY
     Route: 048
     Dates: start: 20220511, end: 20220517
  9. PROGRAF [Suspect]
     Active Substance: TACROLIMUS
     Dosage: 7 MILLIGRAM, TWO TIMES A DAY
     Route: 048
     Dates: start: 20211219, end: 20220105
  10. PROGRAF [Suspect]
     Active Substance: TACROLIMUS
     Dosage: 8 MILLIGRAM, TWO TIMES A DAY
     Route: 048
     Dates: start: 20220106, end: 20220510
  11. PROGRAF [Suspect]
     Active Substance: TACROLIMUS
     Dosage: 7.5 MILLIGRAM, TWO TIMES A DAY
     Route: 048
     Dates: start: 20220518, end: 20220526
  12. PROGRAF [Suspect]
     Active Substance: TACROLIMUS
     Dosage: 6.5 MILLIGRAM, TWO TIMES A DAY
     Route: 048
     Dates: start: 20220527, end: 20220628
  13. PROGRAF [Suspect]
     Active Substance: TACROLIMUS
     Dosage: 5 MILLIGRAM, TWO TIMES A DAY
     Route: 048
     Dates: start: 20220629, end: 20221012
  14. PROGRAF [Suspect]
     Active Substance: TACROLIMUS
     Dosage: 3 MILLIGRAM, TWO TIMES A DAY
     Route: 048
     Dates: start: 20221013, end: 20221021

REACTIONS (1)
  - Pneumocystis jirovecii pneumonia [Recovering/Resolving]

NARRATIVE: CASE EVENT DATE: 20221019
